FAERS Safety Report 18402049 (Version 1)
Quarter: 2020Q4

REPORT INFORMATION
  Report Type: Spontaneous
  Country: MY (occurrence: MY)
  Receive Date: 20201019
  Receipt Date: 20201019
  Transmission Date: 20210114
  Serious: Yes (Hospitalization, Other)
  Sender: FDA-Public Use
  Company Number: MY-B.I. PHARMACEUTICALS,INC./RIDGEFIELD-2020-BI-054474

PATIENT
  Sex: Male

DRUGS (1)
  1. GILOTRIF [Suspect]
     Active Substance: AFATINIB
     Indication: NON-SMALL CELL LUNG CANCER
     Dosage: PATIENT HAD BEEN ON AFATINIB 20MG OD FOR 1.5 YEARS.

REACTIONS (2)
  - Metastases to spinal cord [Recovered/Resolved]
  - EGFR gene mutation [Recovered/Resolved]
